FAERS Safety Report 9404391 (Version 3)
Quarter: 2013Q3

REPORT INFORMATION
  Report Type: Spontaneous
  Country: US (occurrence: None)
  Receive Date: 20130711
  Receipt Date: 20130827
  Transmission Date: 20140515
  Serious: Yes (Hospitalization)
  Sender: FDA-Public Use
  Company Number: OTH-PAT-2013009

PATIENT
  Age: 51 Year
  Sex: Female

DRUGS (1)
  1. CYSTADANE [Suspect]
     Indication: HOMOCYSTINURIA
     Dates: start: 20070713

REACTIONS (6)
  - Psychotic behaviour [None]
  - Depression [None]
  - Disorientation [None]
  - Hypoaesthesia [None]
  - Paraesthesia [None]
  - Overdose [None]
